FAERS Safety Report 9504173 (Version 1)
Quarter: 2013Q3

REPORT INFORMATION
  Report Type: Not Available
  Country: CA (occurrence: CA)
  Receive Date: 20130906
  Receipt Date: 20130906
  Transmission Date: 20140515
  Serious: Yes (Death)
  Sender: FDA-Public Use
  Company Number: CA-PURDUE-CAN-2013-0004404

PATIENT
  Sex: Male

DRUGS (3)
  1. DILAUDID [Suspect]
     Indication: PRODUCT USED FOR UNKNOWN INDICATION
  2. GRAVOL [Concomitant]
     Indication: PRODUCT USED FOR UNKNOWN INDICATION
  3. ZOFRAN                             /00955301/ [Concomitant]
     Indication: PRODUCT USED FOR UNKNOWN INDICATION

REACTIONS (7)
  - Toxicity to various agents [Fatal]
  - Cardiomegaly [Fatal]
  - Atelectasis [Fatal]
  - Lung disorder [Fatal]
  - Drug prescribing error [Fatal]
  - Respiratory depression [Fatal]
  - Hypopnoea [Fatal]
